FAERS Safety Report 8591702-4 (Version None)
Quarter: 2012Q3

REPORT INFORMATION
  Report Type: 
  Country: None (occurrence: None)
  Receive Date: 20120814
  Receipt Date: 20120808
  Transmission Date: 20120928
  Serious: Yes (Other)
  Sender: FDA-Public Use
  Company Number: US-BAYER-2012-081327

PATIENT
  Age: 42 Year
  Sex: Female
  Weight: 109 kg

DRUGS (6)
  1. BETASERON [Suspect]
     Dosage: 0.25MG (1ML), QOD
     Route: 058
  2. METFORMIN HYDROCHLORIDE [Concomitant]
     Dosage: 1000 MG, UNK
  3. GLIMEPIRIDE [Concomitant]
     Dosage: 2 MG, UNK
  4. MELOXICAM [Concomitant]
     Dosage: 15 MG, UNK
  5. JANUVIA [Concomitant]
     Dosage: 100 MG, UNK
  6. SYNTHROID [Concomitant]
     Dosage: 100 ?G, UNK

REACTIONS (2)
  - SPEECH DISORDER [None]
  - DYSARTHRIA [None]
